FAERS Safety Report 7020234-X (Version None)
Quarter: 2010Q3

REPORT INFORMATION
  Report Type: 
  Country: None (occurrence: None)
  Receive Date: 20100929
  Receipt Date: 20100922
  Transmission Date: 20110219
  Serious: Yes (Other)
  Sender: FDA-Public Use
  Company Number: PHHY2010BE58641

PATIENT
  Sex: Female

DRUGS (2)
  1. SANDOSTATIN LAR [Suspect]
     Indication: INTESTINAL FISTULA
     Dosage: 20 MG, QMO
  2. SANDOSTATIN LAR [Suspect]
     Dosage: 20 MG, UNK
     Route: 030

REACTIONS (2)
  - CARDIAC DISORDER [None]
  - DYSPNOEA [None]
